FAERS Safety Report 24094102 (Version 2)
Quarter: 2024Q3

REPORT INFORMATION
  Report Type: Spontaneous
  Country: US (occurrence: US)
  Receive Date: 20240716
  Receipt Date: 20240717
  Transmission Date: 20241017
  Serious: No
  Sender: AMGEN
  Company Number: US-AMGEN-USASP2024139544

PATIENT
  Age: 70 Year
  Sex: Female

DRUGS (2)
  1. TEPEZZA [Suspect]
     Active Substance: TEPROTUMUMAB-TRBW
     Indication: Endocrine ophthalmopathy
     Dosage: 1580 MILLIGRAM, Q3WK, FIRST INFUSION
     Route: 042
     Dates: start: 202404
  2. TEPEZZA [Suspect]
     Active Substance: TEPROTUMUMAB-TRBW
     Dosage: UNK, FIFTH INFUSION
     Route: 042
     Dates: start: 2024

REACTIONS (7)
  - Nasal dryness [Unknown]
  - Epistaxis [Unknown]
  - Skin lesion [Unknown]
  - Acoustic stimulation tests abnormal [Unknown]
  - Glomerular filtration rate decreased [Unknown]
  - Ear discomfort [Unknown]
  - Alopecia [Unknown]

NARRATIVE: CASE EVENT DATE: 20240101
